FAERS Safety Report 11074111 (Version 1)
Quarter: 2015Q2

REPORT INFORMATION
  Report Type: Spontaneous
  Country: US (occurrence: None)
  Receive Date: 20150428
  Receipt Date: 20150428
  Transmission Date: 20150821
  Serious: Yes (Hospitalization)
  Sender: FDA-Public Use
  Company Number: None

PATIENT
  Age: 50 Year
  Sex: Male
  Weight: 78 kg

DRUGS (1)
  1. TIVICAY [Suspect]
     Active Substance: DOLUTEGRAVIR SODIUM
     Indication: DRUG RESISTANCE
     Route: 048
     Dates: start: 20150209, end: 20150323

REACTIONS (12)
  - Fatigue [None]
  - Throat irritation [None]
  - Pyrexia [None]
  - Blood creatinine increased [None]
  - Swelling face [None]
  - Rash pruritic [None]
  - Malaise [None]
  - Peripheral swelling [None]
  - Hepatitis [None]
  - Rash maculo-papular [None]
  - Decreased appetite [None]
  - Drug reaction with eosinophilia and systemic symptoms [None]

NARRATIVE: CASE EVENT DATE: 20150310
